FAERS Safety Report 8601224-X (Version None)
Quarter: 2012Q3

REPORT INFORMATION
  Report Type: 
  Country: None (occurrence: None)
  Receive Date: 20120817
  Receipt Date: 20120813
  Transmission Date: 20120928
  Serious: Yes (Other)
  Sender: FDA-Public Use
  Company Number: PHHY2012AU057841

PATIENT
  Sex: Female

DRUGS (6)
  1. RABEPRAZOLE SODIUM [Concomitant]
     Route: 048
  2. SYMBICORT [Concomitant]
  3. VITAMIN D [Concomitant]
     Route: 048
  4. ZOLEDRONOC ACID [Suspect]
     Dosage: 5 MG,
     Route: 042
     Dates: start: 20100101
  5. VENTOLIN [Concomitant]
  6. ZOLEDRONOC ACID [Suspect]
     Dosage: 5 MG, UNK
     Route: 042
     Dates: start: 20110708

REACTIONS (3)
  - BREAST MASS [None]
  - DEVICE DIFFICULT TO USE [None]
  - BREAST CANCER [None]
